FAERS Safety Report 9104241 (Version 2)
Quarter: 2013Q1

REPORT INFORMATION
  Report Type: Report from Study
  Country: BR (occurrence: BR)
  Receive Date: 20130219
  Receipt Date: 20130326
  Transmission Date: 20140127
  Serious: Yes (Hospitalization)
  Sender: FDA-Public Use
  Company Number: BR-ROCHE-1191345

PATIENT
  Sex: Female
  Weight: 67 kg

DRUGS (4)
  1. ACTEMRA [Suspect]
     Indication: RHEUMATOID ARTHRITIS
     Dosage: LAST DOSE ADMINISTERED: 01/JAN/2013
     Route: 065
     Dates: start: 20110315
  2. PARACETAMOL [Concomitant]
  3. SIMVASTATIN [Concomitant]
     Indication: DYSLIPIDAEMIA
  4. LEFLUNOMIDE [Concomitant]
     Indication: RHEUMATOID ARTHRITIS

REACTIONS (4)
  - Bursa disorder [Unknown]
  - Bursitis infective [Recovered/Resolved]
  - Sinusitis [Unknown]
  - Therapeutic response decreased [Unknown]
